FAERS Safety Report 8396001-1 (Version None)
Quarter: 2012Q2

REPORT INFORMATION
  Report Type: 
  Country: None (occurrence: None)
  Receive Date: 20120530
  Receipt Date: 20120503
  Transmission Date: 20120825
  Serious: No
  Sender: FDA-Public Use
  Company Number: US-JNJFOC-20120506846

PATIENT
  Sex: Male

DRUGS (6)
  1. BENZTROPINE MESYLATE [Concomitant]
     Indication: EXTRAPYRAMIDAL DISORDER
     Route: 048
  2. PROPRANOLOL [Concomitant]
     Indication: EXTRAPYRAMIDAL DISORDER
     Route: 048
  3. KLONOPIN [Concomitant]
     Indication: PRODUCT USED FOR UNKNOWN INDICATION
     Route: 048
  4. GABAPENTIN [Concomitant]
     Indication: PRODUCT USED FOR UNKNOWN INDICATION
     Route: 048
  5. ATENOLOL [Concomitant]
     Indication: PRODUCT USED FOR UNKNOWN INDICATION
     Route: 048
  6. INVEGA SUSTENNA [Suspect]
     Indication: BIPOLAR DISORDER
     Route: 030
     Dates: start: 20110823

REACTIONS (3)
  - EXTRAPYRAMIDAL DISORDER [None]
  - DRUG EFFECT DECREASED [None]
  - TREMOR [None]
